FAERS Safety Report 4377303-2 (Version None)
Quarter: 2004Q2

REPORT INFORMATION
  Report Type: 
  Country: None (occurrence: None)
  Receive Date: 20040609
  Receipt Date: 20040419
  Transmission Date: 20050107
  Serious: No
  Sender: FDA-Public Use
  Company Number: 2004209848US

PATIENT
  Age: 54 Year
  Sex: Female
  Weight: 162.4 kg

DRUGS (10)
  1. BEXTRA [Suspect]
     Indication: ARTHRITIS
     Dosage: 20 MG, QD
     Dates: start: 20030425
  2. GLUCOPHAGE [Concomitant]
  3. METAGLIP [Concomitant]
  4. AMARYL [Concomitant]
  5. FUROSEMIDE [Concomitant]
  6. ALTACE [Concomitant]
  7. THYROID TAB [Concomitant]
  8. KLOR-CON [Concomitant]
  9. MULTIVITAMINS (PANTHENOL, RETINOL, ERCOCALCIFEROL) [Concomitant]
  10. AMBIEN [Concomitant]

REACTIONS (2)
  - HYPERSENSITIVITY [None]
  - NASAL CONGESTION [None]
